FAERS Safety Report 6726966-2 (Version None)
Quarter: 2010Q2

REPORT INFORMATION
  Report Type: 
  Country: None (occurrence: None)
  Receive Date: 20100517
  Receipt Date: 20100505
  Transmission Date: 20101027
  Serious: No
  Sender: FDA-Public Use
  Company Number: 2010BI005582

PATIENT
  Age: 48 Year
  Sex: Female

DRUGS (1)
  1. TYSABRI [Suspect]
     Indication: MULTIPLE SCLEROSIS
     Route: 042
     Dates: start: 20070620, end: 20100203

REACTIONS (6)
  - APHASIA [None]
  - ASTHENIA [None]
  - COGNITIVE DISORDER [None]
  - GAIT DISTURBANCE [None]
  - MEMORY IMPAIRMENT [None]
  - VERTIGO [None]
